FAERS Safety Report 5842053-X (Version None)
Quarter: 2008Q3

REPORT INFORMATION
  Report Type: 
  Country: None (occurrence: None)
  Receive Date: 20080731
  Receipt Date: 20080516
  Transmission Date: 20090109
  Serious: No
  Sender: FDA-Public Use
  Company Number: US200805003102

PATIENT
  Age: 62 Year
  Sex: Male

DRUGS (20)
  1. BYETTA [Suspect]
     Indication: TYPE 2 DIABETES MELLITUS
     Dosage: 5 UG, 2/D, SUBCUTANEOUS; 10 UG, 2/D, SUBCUTANEOUS
     Route: 058
     Dates: start: 20080301, end: 20080401
  2. BYETTA [Suspect]
     Indication: TYPE 2 DIABETES MELLITUS
     Dosage: 5 UG, 2/D, SUBCUTANEOUS; 10 UG, 2/D, SUBCUTANEOUS
     Route: 058
     Dates: start: 20080401
  3. CARDURA [Concomitant]
  4. DIGOXIN [Concomitant]
  5. DEPAKOTE [Concomitant]
  6. ASPIRIN [Concomitant]
  7. EFFEXOR [Concomitant]
  8. LASIX [Concomitant]
  9. GLIMEPIRIDE [Concomitant]
  10. LISINOPRIL [Concomitant]
  11. LOPID [Concomitant]
  12. METOPROLOL TARTRATE [Concomitant]
  13. NIFEDICAL (NIFEDIPINE) [Concomitant]
  14. PLAVIX [Concomitant]
  15. POTASSIUM (POTASSIUM) [Concomitant]
  16. ALDACTONE [Concomitant]
  17. VYTORIN [Concomitant]
  18. PEPCID [Concomitant]
  19. LIPITOR [Concomitant]
  20. LEXAPRO [Concomitant]

REACTIONS (3)
  - BLOOD GLUCOSE INCREASED [None]
  - DECREASED APPETITE [None]
  - NAUSEA [None]
